FAERS Safety Report 8556466-9 (Version None)
Quarter: 2012Q3

REPORT INFORMATION
  Report Type: 
  Country: None (occurrence: None)
  Receive Date: 20120801
  Receipt Date: 20120730
  Transmission Date: 20120928
  Serious: Yes (Death, Life-Threatening, Hospitalization, Other)
  Sender: FDA-Public Use
  Company Number: PHEH2012US013152

PATIENT
  Sex: Female

DRUGS (14)
  1. RECLAST [Suspect]
     Route: 042
  2. PROZAC [Concomitant]
  3. MAGNESIUM [Concomitant]
  4. CALCIUM [Concomitant]
  5. ARAVA [Concomitant]
     Dosage: 20 MG, QD
  6. ALDACTONE [Concomitant]
  7. IMURAN [Concomitant]
     Dosage: 50 MG, BID
  8. PREDNISONE [Concomitant]
     Dosage: 15 MG, QD
  9. LISINOPRIL [Concomitant]
  10. ZYRTEC [Concomitant]
  11. SINGULAIR [Concomitant]
  12. TRAMADOL HYDROCHLORIDE [Concomitant]
  13. PRILOSEC [Concomitant]
  14. TRAZODONE HYDROCHLORIDE [Concomitant]

REACTIONS (20)
  - OEDEMA PERIPHERAL [None]
  - ARTHRALGIA [None]
  - LIVEDO RETICULARIS [None]
  - EJECTION FRACTION DECREASED [None]
  - ACIDOSIS [None]
  - CARDIOMYOPATHY [None]
  - ANURIA [None]
  - DEATH [None]
  - TACHYCARDIA [None]
  - INFECTION IN AN IMMUNOCOMPROMISED HOST [None]
  - PERIPHERAL ISCHAEMIA [None]
  - RENAL FAILURE ACUTE [None]
  - ATRIAL FIBRILLATION [None]
  - GAIT DISTURBANCE [None]
  - PAIN [None]
  - ERYTHEMA [None]
  - HYPOTENSION [None]
  - PAIN IN EXTREMITY [None]
  - LACTIC ACIDOSIS [None]
  - BACTERIAL SEPSIS [None]
